FAERS Safety Report 25071132 (Version 1)
Quarter: 2025Q1

REPORT INFORMATION
  Report Type: Spontaneous
  Country: IT (occurrence: IT)
  Receive Date: 20250312
  Receipt Date: 20250312
  Transmission Date: 20250409
  Serious: Yes (Other)
  Sender: MYLAN
  Company Number: None

PATIENT
  Age: 65 Year
  Sex: Male

DRUGS (8)
  1. ATORVASTATIN [Suspect]
     Active Substance: ATORVASTATIN
     Indication: Hypercholesterolaemia
     Dosage: 40 MILLIGRAM, QD, TORVAST, 30 COATED TABLETS 40 MG: 1 TABLET/DAY
     Dates: start: 201604, end: 201606
  2. ATORVASTATIN [Suspect]
     Active Substance: ATORVASTATIN
     Dosage: 40 MILLIGRAM, QD, TORVAST, 30 COATED TABLETS 40 MG: 1 TABLET/DAY
     Route: 048
     Dates: start: 201604, end: 201606
  3. ATORVASTATIN [Suspect]
     Active Substance: ATORVASTATIN
     Dosage: 40 MILLIGRAM, QD, TORVAST, 30 COATED TABLETS 40 MG: 1 TABLET/DAY
     Route: 048
     Dates: start: 201604, end: 201606
  4. ATORVASTATIN [Suspect]
     Active Substance: ATORVASTATIN
     Dosage: 40 MILLIGRAM, QD, TORVAST, 30 COATED TABLETS 40 MG: 1 TABLET/DAY
     Dates: start: 201604, end: 201606
  5. ASPIRIN [Concomitant]
     Active Substance: ASPIRIN
     Indication: Thrombosis prophylaxis
     Dosage: 100 MILLIGRAM, QD, CARDIOASPIRIN, 30 GASTRORESISTANT TABLETS 100 MG: 1 TABLET/DAY
  6. ASPIRIN [Concomitant]
     Active Substance: ASPIRIN
     Dosage: 100 MILLIGRAM, QD, CARDIOASPIRIN, 30 GASTRORESISTANT TABLETS 100 MG: 1 TABLET/DAY
     Route: 048
  7. ASPIRIN [Concomitant]
     Active Substance: ASPIRIN
     Dosage: 100 MILLIGRAM, QD, CARDIOASPIRIN, 30 GASTRORESISTANT TABLETS 100 MG: 1 TABLET/DAY
     Route: 048
  8. ASPIRIN [Concomitant]
     Active Substance: ASPIRIN
     Dosage: 100 MILLIGRAM, QD, CARDIOASPIRIN, 30 GASTRORESISTANT TABLETS 100 MG: 1 TABLET/DAY

REACTIONS (1)
  - Haematochezia [Recovered/Resolved]

NARRATIVE: CASE EVENT DATE: 20160401
